FAERS Safety Report 23720382 (Version 1)
Quarter: 2024Q2

REPORT INFORMATION
  Report Type: Spontaneous
  Country: US (occurrence: None)
  Receive Date: 20240408
  Receipt Date: 20240408
  Transmission Date: 20240716
  Serious: No
  Sender: FDA-Public Use
  Company Number: 2024A061070

PATIENT
  Age: 24 Year
  Sex: Male

DRUGS (1)
  1. KOSELUGO [Suspect]
     Active Substance: SELUMETINIB
     Route: 048
     Dates: start: 2017

REACTIONS (4)
  - Blister [Unknown]
  - Dandruff [Unknown]
  - Dermatitis acneiform [Unknown]
  - Paronychia [Unknown]
